FAERS Safety Report 8174288-8 (Version None)
Quarter: 2012Q1

REPORT INFORMATION
  Report Type: 
  Country: None (occurrence: None)
  Receive Date: 20120229
  Receipt Date: 20120220
  Transmission Date: 20120608
  Serious: Yes (Other)
  Sender: FDA-Public Use
  Company Number: FR-VERTEX PHARMACEUTICALS INC.-000000000000000265

PATIENT
  Sex: Female

DRUGS (6)
  1. REYATAZ [Concomitant]
  2. COPEGUS [Concomitant]
     Indication: HEPATITIS C
     Dosage: DOSAGE FORM: TABLET
     Route: 048
     Dates: start: 20111122
  3. NORVIR [Concomitant]
  4. INCIVO (TELAPREVIR) [Suspect]
     Indication: HEPATITIS C
     Dosage: DOSAGE FORM: TABLET
     Route: 048
     Dates: start: 20111122
  5. PEGASYS [Concomitant]
     Indication: HEPATITIS C
     Dosage: DOSAGE FORM: SOLUTION FOR INJECTION
     Route: 058
     Dates: start: 20111122
  6. TRUVADA [Concomitant]

REACTIONS (6)
  - NEUTROPENIA [None]
  - OFF LABEL USE [None]
  - HAEMOGLOBIN DECREASED [None]
  - DRY SKIN [None]
  - ASTHENIA [None]
  - THROMBOCYTOPENIA [None]
